FAERS Safety Report 15268297 (Version 1)
Quarter: 2018Q3

REPORT INFORMATION
  Report Type: Spontaneous
  Country: US (occurrence: US)
  Receive Date: 20180725
  Receipt Date: 20180725
  Transmission Date: 20181010
  Serious: Yes (Life-Threatening)
  Sender: FDA-Public Use
  Company Number: None

PATIENT
  Age: 75 Year
  Sex: Male
  Weight: 84.1 kg

DRUGS (1)
  1. PROLEUKIN [Suspect]
     Active Substance: ALDESLEUKIN
     Indication: NON-SMALL CELL LUNG CANCER
     Dosage: ?          OTHER FREQUENCY:CONTINUOUS OVER 2 ;?
     Route: 042
     Dates: start: 20180717, end: 20180718

REACTIONS (5)
  - Oxygen saturation decreased [None]
  - Cerebral ischaemia [None]
  - Facial paralysis [None]
  - Cerebral arteriosclerosis [None]
  - Cerebral infarction [None]

NARRATIVE: CASE EVENT DATE: 20180720
